FAERS Safety Report 9336623 (Version 1)
Quarter: 2013Q2

REPORT INFORMATION
  Report Type: Spontaneous
  Country: US (occurrence: US)
  Receive Date: 20130607
  Receipt Date: 20130607
  Transmission Date: 20140414
  Serious: Yes (Other)
  Sender: FDA-Public Use
  Company Number: US-SHIRE-ALL1-2013-03716

PATIENT
  Age: 29 Year
  Sex: Male
  Weight: 86.17 kg

DRUGS (6)
  1. ADDERALL XR [Suspect]
     Indication: SOMNOLENCE
     Dosage: 20 MG, 2X/DAY:BID
     Route: 048
     Dates: start: 201209, end: 201209
  2. ADDERALL XR [Suspect]
     Dosage: 20 MG, 1X/DAY:QD
     Route: 048
     Dates: end: 201209
  3. MAS (MIXED AMPHETAMINE SALTS) [Suspect]
     Indication: SOMNOLENCE
     Dosage: 20 MG, 2X/DAY:BID
     Route: 048
     Dates: start: 201305, end: 20130530
  4. MAS (MIXED AMPHETAMINE SALTS) [Suspect]
     Dosage: 20 MG, 1X/DAY:QD
     Route: 048
     Dates: end: 201305
  5. PAXIL                              /00830802/ [Concomitant]
     Indication: DEPRESSION
     Dosage: UNK UNK, 1X/DAY:QD
     Route: 065
     Dates: start: 1995
  6. PAXIL                              /00830802/ [Concomitant]
     Indication: ANXIETY

REACTIONS (7)
  - Psychotic behaviour [Not Recovered/Not Resolved]
  - Hallucinations, mixed [Not Recovered/Not Resolved]
  - Delusion [Not Recovered/Not Resolved]
  - Violence-related symptom [Not Recovered/Not Resolved]
  - Intentional overdose [Recovered/Resolved]
  - Off label use [Recovered/Resolved]
  - Inappropriate schedule of drug administration [Recovered/Resolved]
